FAERS Safety Report 12793860 (Version 1)
Quarter: 2016Q3

REPORT INFORMATION
  Report Type: Spontaneous
  Country: US (occurrence: US)
  Receive Date: 20160929
  Receipt Date: 20160929
  Transmission Date: 20161109
  Serious: No
  Sender: FDA-Public Use
  Company Number: US-JAZZ-2016-US-011928

PATIENT
  Sex: Female

DRUGS (44)
  1. VITAMIN D [Concomitant]
     Active Substance: CHOLECALCIFEROL
  2. SONATA [Concomitant]
     Active Substance: ZALEPLON
  3. CLONIDINE HCL [Concomitant]
     Active Substance: CLONIDINE HYDROCHLORIDE
  4. PILOCARPINE HCL [Concomitant]
     Active Substance: PILOCARPINE HYDROCHLORIDE
  5. TIZANIDINE HCL [Concomitant]
     Active Substance: TIZANIDINE HYDROCHLORIDE
  6. MOBIC [Concomitant]
     Active Substance: MELOXICAM
  7. TOPAMAX [Concomitant]
     Active Substance: TOPIRAMATE
  8. ZYRTEC [Concomitant]
     Active Substance: CETIRIZINE HYDROCHLORIDE
  9. XYREM [Suspect]
     Active Substance: SODIUM OXYBATE
     Indication: CATAPLEXY
     Dosage: 3.75 G, BID
     Route: 048
     Dates: start: 200802, end: 200804
  10. MORPHINE SULFATE. [Concomitant]
     Active Substance: MORPHINE SULFATE
  11. ZEGERID [Concomitant]
     Active Substance: OMEPRAZOLE\SODIUM BICARBONATE
  12. DICLOFENAC [Concomitant]
     Active Substance: DICLOFENAC
  13. RELISTOR [Concomitant]
     Active Substance: METHYLNALTREXONE BROMIDE
  14. COENZYME Q10 [Concomitant]
     Active Substance: UBIDECARENONE
  15. WELLBUTRIN [Concomitant]
     Active Substance: BUPROPION HYDROCHLORIDE
  16. SENNALAX [Concomitant]
  17. DAYTRANA [Concomitant]
     Active Substance: METHYLPHENIDATE
  18. DIOVAN [Concomitant]
     Active Substance: VALSARTAN
  19. XYREM [Suspect]
     Active Substance: SODIUM OXYBATE
     Dosage: 4.5 G, BID
     Route: 048
     Dates: start: 200804
  20. XYREM [Suspect]
     Active Substance: SODIUM OXYBATE
     Dosage: 4.5 G, BID
     Route: 048
     Dates: start: 201207
  21. MAGNESIUM OXIDE. [Concomitant]
     Active Substance: MAGNESIUM OXIDE
  22. ROBAXIN [Concomitant]
     Active Substance: METHOCARBAMOL
  23. LISINOPRIL. [Concomitant]
     Active Substance: LISINOPRIL
  24. NORVASC [Concomitant]
     Active Substance: AMLODIPINE BESYLATE
  25. LEXAPRO [Concomitant]
     Active Substance: ESCITALOPRAM OXALATE
  26. OMEPRAZOLE. [Concomitant]
     Active Substance: OMEPRAZOLE
  27. CRESTOR [Concomitant]
     Active Substance: ROSUVASTATIN CALCIUM
  28. ZITHROMAX [Concomitant]
     Active Substance: AZITHROMYCIN DIHYDRATE
  29. ALLERX DF [Concomitant]
  30. FLUOXETINE [Concomitant]
     Active Substance: FLUOXETINE HYDROCHLORIDE
  31. PHENAZOPYRIDINE. [Concomitant]
     Active Substance: PHENAZOPYRIDINE
  32. MORPHINE SULF [Concomitant]
     Active Substance: MORPHINE SULFATE
  33. CARBIDOPA AND LEVODOPA [Concomitant]
     Active Substance: CARBIDOPA\LEVODOPA
  34. SYNTHROID [Concomitant]
     Active Substance: LEVOTHYROXINE SODIUM
  35. NUVIGIL [Concomitant]
     Active Substance: ARMODAFINIL
  36. XYREM [Suspect]
     Active Substance: SODIUM OXYBATE
     Indication: NARCOLEPSY
     Dosage: 3 G, BID
     Route: 048
     Dates: start: 200801, end: 200802
  37. ALLEGRA-D [Concomitant]
     Active Substance: FEXOFENADINE\PSEUDOEPHEDRINE
  38. CALCIUM +D [Concomitant]
     Active Substance: CALCIUM\VITAMIN D
  39. MELOXICAM. [Concomitant]
     Active Substance: MELOXICAM
  40. METOPROLOL SUCCINATE. [Concomitant]
     Active Substance: METOPROLOL SUCCINATE
  41. CLONAZEPAM. [Concomitant]
     Active Substance: CLONAZEPAM
  42. HYDROCODONE BITARTRATE AND ACETAMINOPHEN [Concomitant]
     Active Substance: ACETAMINOPHEN\HYDROCODONE BITARTRATE
  43. NORTRIPTYLINE HCL [Concomitant]
     Active Substance: NORTRIPTYLINE HYDROCHLORIDE
  44. PROVIGIL [Concomitant]
     Active Substance: MODAFINIL

REACTIONS (1)
  - Drug ineffective [Unknown]
